FAERS Safety Report 8556381-0 (Version None)
Quarter: 2012Q3

REPORT INFORMATION
  Report Type: 
  Country: None (occurrence: None)
  Receive Date: 20120801
  Receipt Date: 20120727
  Transmission Date: 20120928
  Serious: Yes (Hospitalization)
  Sender: FDA-Public Use
  Company Number: PHHY2011BR92979

PATIENT
  Sex: Female

DRUGS (9)
  1. PREDNISONE [Concomitant]
     Indication: ASTHMA
     Dosage: 0.5 DF, QD
     Route: 048
  2. XOLAIR [Suspect]
     Indication: ASTHMA
  3. PREDNISONE [Concomitant]
     Indication: DYSPNOEA
     Dosage: 3 DF,  TABLETS A DAY FOR 5 DAYS
     Route: 048
  4. XOLAIR [Suspect]
     Indication: BRONCHITIS
     Route: 058
     Dates: start: 20100101
  5. XOLAIR [Suspect]
     Indication: DYSPNOEA
  6. PREDNISONE [Concomitant]
     Dosage: 80 MG, 60 TO 80 MG FOR 23 YEARS
     Route: 048
  7. ALBUTEROL SULATE [Concomitant]
     Indication: ASTHMA
     Dosage: 3 MG, UNK
  8. FORMOTEROL FUMARATE [Suspect]
     Indication: ASTHMA
     Dosage: 2 DF, 12/400 2 CAPSULES EVERY 4 HOURS FOR 23 YEARS
  9. ALBUTEROL SULATE [Concomitant]
     Indication: DYSPNOEA
     Dosage: ONCE EVERY 4 HOURS OR EVERY 6 HOURS, MANY YEARS

REACTIONS (10)
  - BRONCHITIS [None]
  - BACK PAIN [None]
  - ASTHMA [None]
  - INSOMNIA [None]
  - DYSPNOEA [None]
  - FATIGUE [None]
  - HYPERTENSION [None]
  - CHEST PAIN [None]
  - WHEEZING [None]
  - DRUG INEFFECTIVE [None]
